FAERS Safety Report 7827472-4 (Version None)
Quarter: 2011Q4

REPORT INFORMATION
  Report Type: 
  Country: None (occurrence: None)
  Receive Date: 20111020
  Receipt Date: 20111018
  Transmission Date: 20120403
  Serious: Yes (Hospitalization)
  Sender: FDA-Public Use
  Company Number: DE-SANOFI-AVENTIS-2011SA039489

PATIENT
  Age: 89 Year
  Sex: Female
  Weight: 67 kg

DRUGS (10)
  1. METOPROLOL TARTRATE [Concomitant]
  2. RAMIPRIL [Concomitant]
  3. DIGOXIN [Concomitant]
  4. DIGOXIN [Concomitant]
     Dates: start: 20110531
  5. METFORMIN HCL [Concomitant]
  6. DRONEDARONE HCL [Suspect]
     Indication: ATRIAL FIBRILLATION
     Route: 048
     Dates: start: 20110524
  7. HYDROCHLOROTHIAZIDE [Concomitant]
  8. OMEPRAZOLE [Concomitant]
  9. LEVOTHYROXINE SODIUM [Concomitant]
  10. PHENPROCOUMON [Concomitant]
     Dosage: 10.5MG WEEKLY

REACTIONS (1)
  - TOXICITY TO VARIOUS AGENTS [None]
